FAERS Safety Report 15898389 (Version 1)
Quarter: 2019Q1

REPORT INFORMATION
  Report Type: Spontaneous
  Country: DE (occurrence: DE)
  Receive Date: 20190201
  Receipt Date: 20190201
  Transmission Date: 20190417
  Serious: Yes (Death, Hospitalization, Other)
  Sender: FDA-Public Use
  Company Number: DE-AUROBINDO-AUR-APL-2019-003841

PATIENT

DRUGS (14)
  1. JAKAVI [Suspect]
     Active Substance: RUXOLITINIB
     Dosage: 30 MILLIGRAM, ONCE A DAY
     Route: 048
     Dates: start: 20130901, end: 20131030
  2. JAKAVI [Suspect]
     Active Substance: RUXOLITINIB
     Dosage: 30 MILLIGRAM, ONCE A DAY, 15 MG, BID(2 DF PER DAY)
     Route: 048
     Dates: start: 20131115, end: 20140227
  3. JAKAVI [Suspect]
     Active Substance: RUXOLITINIB
     Dosage: 10 MILLIGRAM, ONCE A DAY, 5 MG, BID (2 DF PER DAY)
     Route: 048
     Dates: start: 20140228, end: 20140311
  4. RAMIPRIL. [Concomitant]
     Active Substance: RAMIPRIL
     Indication: PRODUCT USED FOR UNKNOWN INDICATION
     Dosage: 5 MILLIGRAM, ONCE A DAY
     Route: 065
     Dates: start: 20100419, end: 2013
  5. SYREA [Concomitant]
     Active Substance: HYDROXYUREA
     Indication: PRODUCT USED FOR UNKNOWN INDICATION
     Dosage: 2500 MILLIGRAM, ONCE A DAY
     Route: 065
     Dates: start: 20130122, end: 20130602
  6. SYREA [Concomitant]
     Active Substance: HYDROXYUREA
     Dosage: 1500 MILLIGRAM, ONCE A DAY
     Route: 065
     Dates: start: 20130603, end: 20130605
  7. TILIDINE [Concomitant]
     Active Substance: TILIDINE
     Indication: ABDOMINAL PAIN
     Dosage: 100 MILLIGRAM, ONCE A DAY
     Route: 065
     Dates: start: 20130603, end: 20130605
  8. HYDROMORPHONE [Suspect]
     Active Substance: HYDROMORPHONE
     Indication: ABDOMINAL PAIN
     Dosage: 16 MILLIGRAM, ONCE A DAY
     Route: 065
     Dates: start: 20130606, end: 20130612
  9. SYREA [Concomitant]
     Active Substance: HYDROXYUREA
     Dosage: 2000 MILLIGRAM, ONCE A DAY
     Route: 065
     Dates: start: 20130606
  10. LEVOFLOXACIN. [Concomitant]
     Active Substance: LEVOFLOXACIN
     Indication: C-REACTIVE PROTEIN INCREASED
     Dosage: 500 MILLIGRAM, ONCE A DAY
     Route: 065
     Dates: start: 20130604, end: 20130605
  11. HYDROMORPHONE [Suspect]
     Active Substance: HYDROMORPHONE
     Indication: SPLENOMEGALY
  12. LITALIR [Concomitant]
     Active Substance: HYDROXYUREA
     Indication: MYELOFIBROSIS
     Dosage: 2500 MILLIGRAM, ONCE A DAY
     Route: 065
     Dates: start: 20130729
  13. METAMIZOLE [Concomitant]
     Active Substance: METAMIZOLE
     Indication: ABDOMINAL PAIN
     Dosage: 120 GTT DROPS, ONCE A DAY
     Route: 065
  14. JAKAVI [Suspect]
     Active Substance: RUXOLITINIB
     Indication: PRODUCT USED FOR UNKNOWN INDICATION
     Dosage: 30 MILLIGRAM, ONCE A DAY, 15 MG, BID (2DF PER DAY)
     Route: 048
     Dates: start: 20130221

REACTIONS (12)
  - C-reactive protein increased [Recovering/Resolving]
  - Asthenia [Recovered/Resolved]
  - Abdominal pain [Recovered/Resolved]
  - Splenomegaly [Recovered/Resolved]
  - Blood lactate dehydrogenase increased [Unknown]
  - Platelet count decreased [Unknown]
  - White blood cell count increased [Unknown]
  - Acute myeloid leukaemia [Fatal]
  - Neutrophil count increased [Unknown]
  - Haemoglobin decreased [Recovering/Resolving]
  - Glomerular filtration rate decreased [Unknown]
  - Dizziness [Recovered/Resolved]

NARRATIVE: CASE EVENT DATE: 20130603
